FAERS Safety Report 6425709-X (Version None)
Quarter: 2009Q4

REPORT INFORMATION
  Report Type: 
  Country: None (occurrence: None)
  Receive Date: 20091103
  Receipt Date: 20091029
  Transmission Date: 20100525
  Serious: Yes (Death, Other)
  Sender: FDA-Public Use
  Company Number: PHHY2009CA47592

PATIENT
  Sex: Female

DRUGS (1)
  1. ACLASTA [Suspect]

REACTIONS (3)
  - BRAIN NEOPLASM [None]
  - BRAIN TUMOUR OPERATION [None]
  - PULMONARY EMBOLISM [None]
